FAERS Safety Report 7464021-7 (Version None)
Quarter: 2011Q2

REPORT INFORMATION
  Report Type: 
  Country: None (occurrence: None)
  Receive Date: 20110506
  Receipt Date: 20110426
  Transmission Date: 20111010
  Serious: Yes (Hospitalization)
  Sender: FDA-Public Use
  Company Number: ZA-B.I. PHARMACEUTICALS,INC./RIDGEFIELD-2011-DE-02458DE

PATIENT
  Sex: Male
  Weight: 68.2 kg

DRUGS (45)
  1. DOCETAXEL [Suspect]
     Indication: NON-SMALL CELL LUNG CANCER
     Dosage: 137.25 MG
     Route: 042
     Dates: start: 20101102, end: 20101102
  2. ONDANSETRON [Concomitant]
     Dosage: 50 MG
     Route: 042
     Dates: start: 20110104, end: 20110104
  3. RANITIDINE [Concomitant]
     Dosage: 50 MG
     Route: 042
     Dates: start: 10110104, end: 20110104
  4. SOLU-CORTEF [Concomitant]
     Dosage: 100 MG
     Route: 042
     Dates: start: 20110104, end: 20110104
  5. NEUPOGEN [Concomitant]
     Indication: PROPHYLAXIS
     Dosage: 30 U
     Route: 058
     Dates: start: 20110106, end: 20110110
  6. BLIND (BIBF 1120) [Suspect]
     Indication: NON-SMALL CELL LUNG CANCER
     Dosage: 400 MG
     Route: 048
     Dates: start: 20101102
  7. DOCETAXEL [Suspect]
     Dosage: 110 MG
     Route: 042
     Dates: start: 20101214, end: 20101214
  8. DOCETAXEL [Suspect]
     Dosage: 110 MG
     Route: 042
     Dates: start: 20110126, end: 20110126
  9. DOCETAXEL [Suspect]
     Dosage: 110 MG
     Route: 042
     Dates: start: 20110329, end: 20110329
  10. BETANOID [Concomitant]
     Indication: PREMEDICATION
     Dosage: 48 MG
     Route: 048
     Dates: start: 20110328, end: 20110330
  11. BETANOID [Concomitant]
     Dosage: 16 MG
     Route: 048
     Dates: start: 20101213, end: 20101215
  12. ONDANSETRON [Concomitant]
     Dosage: 50 MG
     Route: 042
     Dates: start: 20101102, end: 20101102
  13. RANITIDINE [Concomitant]
     Dosage: 50 MG
     Route: 042
     Dates: start: 20101214, end: 20101214
  14. SOLU-CORTEF [Concomitant]
     Dosage: 100 MG
     Route: 042
     Dates: start: 20101214, end: 20101214
  15. NEUPOGEN [Concomitant]
     Dosage: 30 U
     Route: 058
     Dates: start: 20110331, end: 20110404
  16. BETANOID [Concomitant]
     Dosage: 16 MG
     Route: 048
     Dates: start: 20110103, end: 20110105
  17. ONDANSETRON [Concomitant]
     Dosage: 50 MG
     Route: 042
     Dates: start: 20101214, end: 20101214
  18. SOLU-CORTEF [Concomitant]
     Dosage: 100 MG
     Route: 042
     Dates: start: 20101102, end: 20101102
  19. SOLU-CORTEF [Concomitant]
     Dosage: 100 MG
     Route: 042
     Dates: start: 20110215, end: 20110215
  20. DOCETAXEL [Suspect]
     Dosage: 110 MG
     Route: 042
     Dates: start: 20110215, end: 20110215
  21. BETANOID [Concomitant]
     Dosage: 16 MG
     Route: 048
     Dates: start: 20101101, end: 20101103
  22. ONDANSETRON [Concomitant]
     Dosage: 50 MG
     Route: 042
     Dates: start: 20101123, end: 20101123
  23. RANITIDINE [Concomitant]
     Dosage: 50 MG
     Route: 042
     Dates: start: 20101102, end: 20101102
  24. RANITIDINE [Concomitant]
     Dosage: 50 MG
     Route: 042
     Dates: start: 20110215, end: 20110215
  25. RANITIDINE [Concomitant]
     Dosage: 50 MG
     Route: 042
     Dates: start: 20110308, end: 20110308
  26. DOCETAXEL [Suspect]
     Dosage: 137.25 MG
     Route: 042
     Dates: start: 20101123, end: 20101123
  27. BETANOID [Concomitant]
     Dosage: 16 MG
     Route: 048
     Dates: start: 20101122, end: 20101124
  28. BETANOID [Concomitant]
     Dosage: 16 MG
     Route: 048
     Dates: start: 20110307, end: 20110309
  29. ONDANSETRON [Concomitant]
     Indication: PROPHYLAXIS
     Dosage: 50 MG
     Route: 042
     Dates: start: 20110329, end: 20110329
  30. ONDANSETRON [Concomitant]
     Dosage: 50 MG
     Route: 042
     Dates: start: 20110126, end: 20110126
  31. ONDANSETRON [Concomitant]
     Dosage: 50 MG
     Route: 042
     Dates: start: 20110215, end: 20110215
  32. RANITIDINE [Concomitant]
     Indication: PROPHYLAXIS
     Dosage: 50 MG
     Route: 042
     Dates: start: 20110329, end: 20110329
  33. RANITIDINE [Concomitant]
     Dosage: 50 MG
     Route: 042
     Dates: start: 10110126, end: 20110126
  34. SOLU-CORTEF [Concomitant]
     Indication: PROPHYLAXIS
     Dosage: 100 MG
     Route: 042
     Dates: start: 20110329, end: 20110329
  35. SOLU-CORTEF [Concomitant]
     Dosage: 100 MG
     Route: 042
     Dates: start: 20101123, end: 20101123
  36. NEUPOGEN [Concomitant]
     Dosage: 30 U
     Route: 058
     Dates: start: 20110310, end: 20110314
  37. BETANOID [Concomitant]
     Dosage: 16 MG
     Route: 048
     Dates: start: 20110125, end: 20110127
  38. ONDANSETRON [Concomitant]
     Dosage: 50 MG
     Route: 042
     Dates: start: 20110308, end: 20110308
  39. RANITIDINE [Concomitant]
     Dosage: 50 MG
     Route: 042
     Dates: start: 20101123, end: 20101123
  40. SOLU-CORTEF [Concomitant]
     Dosage: 100 MG
     Route: 042
     Dates: start: 20110308, end: 20110308
  41. NEUPOGEN [Concomitant]
     Dosage: 30 U
     Route: 058
     Dates: start: 20110128, end: 20110201
  42. NEUPOGEN [Concomitant]
     Dosage: 30 U
     Route: 058
     Dates: start: 20110217, end: 20110221
  43. DOCETAXEL [Suspect]
     Dosage: 110 MG
     Route: 042
     Dates: start: 20110104, end: 20110104
  44. DOCETAXEL [Suspect]
     Dosage: 110 MG
     Route: 042
     Dates: start: 20110308, end: 20110308
  45. BETANOID [Concomitant]
     Dosage: 16 MG
     Route: 048
     Dates: start: 20110214, end: 20110216

REACTIONS (11)
  - DECREASED APPETITE [None]
  - LOWER RESPIRATORY TRACT INFECTION [None]
  - ASTHENIA [None]
  - DIARRHOEA [None]
  - HYPOMAGNESAEMIA [None]
  - ORAL CANDIDIASIS [None]
  - NAUSEA [None]
  - RHINITIS [None]
  - HYPOALBUMINAEMIA [None]
  - DYSPEPSIA [None]
  - COUGH [None]
